FAERS Safety Report 4582508-1 (Version None)
Quarter: 2005Q1

REPORT INFORMATION
  Report Type: 
  Country: None (occurrence: None)
  Receive Date: 20050127
  Receipt Date: 20040923
  Transmission Date: 20050727
  Serious: No
  Sender: FDA-Public Use
  Company Number: USA040979144

PATIENT
  Sex: Female

DRUGS (2)
  1. STRATTERA [Suspect]
     Dosage: 40 MG/2 DAY
     Dates: start: 20040801
  2. WELLBUTRIN (IBUPROPION HYDROCHLORIDE) [Concomitant]

REACTIONS (2)
  - DRY MOUTH [None]
  - PSYCHOMOTOR HYPERACTIVITY [None]
